FAERS Safety Report 16696621 (Version 1)
Quarter: 2019Q3

REPORT INFORMATION
  Report Type: Spontaneous
  Country: US (occurrence: US)
  Receive Date: 20190626
  Receipt Date: 20190626
  Transmission Date: 20191004
  Serious: No
  Sender: FDA-Public Use
  Company Number: None

PATIENT
  Age: 57 Year
  Sex: Female

DRUGS (4)
  1. EPCLUSA [Suspect]
     Active Substance: SOFOSBUVIR\VELPATASVIR
     Indication: HEPATITIS C
     Dosage: ?          OTHER DOSE:400-100;?
     Route: 048
     Dates: start: 20190503
  2. PRAZOSTIN [Concomitant]
  3. CHLORZOXAZONE. [Concomitant]
     Active Substance: CHLORZOXAZONE
  4. FOLIC ACID. [Concomitant]
     Active Substance: FOLIC ACID

REACTIONS (8)
  - Joint swelling [None]
  - Hot flush [None]
  - Disturbance in attention [None]
  - Nausea [None]
  - Chills [None]
  - Alopecia [None]
  - Fatigue [None]
  - Headache [None]

NARRATIVE: CASE EVENT DATE: 20190626
